FAERS Safety Report 20504855 (Version 1)
Quarter: 2022Q1

REPORT INFORMATION
  Report Type: Spontaneous
  Country: US (occurrence: US)
  Receive Date: 20220223
  Receipt Date: 20220223
  Transmission Date: 20220424
  Serious: No
  Sender: FDA-Public Use
  Company Number: US-SA-SAC20220217000368

PATIENT
  Age: 51 Year
  Sex: Female

DRUGS (1)
  1. AUBAGIO [Suspect]
     Active Substance: TERIFLUNOMIDE
     Indication: Essential hypertension
     Dosage: 14 MG, QD
     Route: 048

REACTIONS (5)
  - Rash pruritic [Unknown]
  - Skin exfoliation [Unknown]
  - Hepatic enzyme increased [Unknown]
  - Psoriasis [Unknown]
  - Product use in unapproved indication [Unknown]
